FAERS Safety Report 8811980 (Version 1)
Quarter: 2012Q4

REPORT INFORMATION
  Report Type: Spontaneous
  Country: GB (occurrence: None)
  Receive Date: 20120924
  Receipt Date: 20120924
  Transmission Date: 20130627
  Serious: Yes (Hospitalization)
  Sender: FDA-Public Use
  Company Number: 2012GB0297

PATIENT
  Age: 42 Year
  Sex: Male

DRUGS (10)
  1. ANAKINRA [Suspect]
     Indication: GOUT
  2. ALLOPURINOL [Concomitant]
  3. AMLODIPINE [Concomitant]
  4. CO-CODAMOL (CODEINE PHOSPHATE, PARACETAMOL) [Concomitant]
  5. ETORICOXIB [Concomitant]
  6. LANSOPRAZOLE [Concomitant]
  7. MORPHINE SULFATE (MORPHINE) [Concomitant]
  8. PREDNISOLONE [Concomitant]
  9. RAMIPRIL [Concomitant]
  10. TEMAZEPAM [Concomitant]

REACTIONS (2)
  - Face oedema [None]
  - Oedema peripheral [None]
